FAERS Safety Report 4702203-5 (Version None)
Quarter: 2005Q2

REPORT INFORMATION
  Report Type: 
  Country: None (occurrence: None)
  Receive Date: 20050627
  Receipt Date: 20050201
  Transmission Date: 20051028
  Serious: Yes (Other)
  Sender: FDA-Public Use
  Company Number: 2005032160

PATIENT
  Sex: Female

DRUGS (3)
  1. DETROL LA [Suspect]
     Indication: ILL-DEFINED DISORDER
     Dosage: (4 MG)
  2. ZOLOFT [Suspect]
     Indication: ILL-DEFINED DISORDER
  3. METHADONE HCL [Suspect]
     Indication: PAIN

REACTIONS (3)
  - BLADDER SPASM [None]
  - MULTIPLE SCLEROSIS [None]
  - PAIN [None]
